FAERS Safety Report 19881122 (Version 5)
Quarter: 2022Q1

REPORT INFORMATION
  Report Type: Report from Study
  Country: US (occurrence: US)
  Receive Date: 20210924
  Receipt Date: 20220129
  Transmission Date: 20220423
  Serious: No
  Sender: FDA-Public Use
  Company Number: NVSC2021US216794

PATIENT
  Sex: Female

DRUGS (4)
  1. COSENTYX [Suspect]
     Active Substance: SECUKINUMAB
     Indication: Axial spondyloarthritis
     Dosage: 150 MG, EVERY WEEK X 5 WEEKS THEN EVERY 4
     Route: 058
     Dates: start: 20210808
  2. COSENTYX [Suspect]
     Active Substance: SECUKINUMAB
     Dosage: 150 MG (PAIR OF PENS AS DIALED INJECTION)
     Route: 058
  3. COSENTYX [Suspect]
     Active Substance: SECUKINUMAB
     Dosage: UNK
     Route: 065
     Dates: start: 20211128
  4. COSENTYX [Suspect]
     Active Substance: SECUKINUMAB
     Dosage: 150 MG
     Route: 065
     Dates: start: 20220109

REACTIONS (11)
  - Back pain [Unknown]
  - Fatigue [Recovering/Resolving]
  - Arthralgia [Unknown]
  - Injection site reaction [Unknown]
  - Injection site irritation [Unknown]
  - Injection site rash [Unknown]
  - Injection site pain [Unknown]
  - Musculoskeletal stiffness [Unknown]
  - Feeling abnormal [Unknown]
  - Dysstasia [Unknown]
  - Drug ineffective [Unknown]
